FAERS Safety Report 12735978 (Version 2)
Quarter: 2016Q4

REPORT INFORMATION
  Report Type: Spontaneous
  Country: US (occurrence: US)
  Receive Date: 20160912
  Receipt Date: 20161019
  Transmission Date: 20170207
  Serious: Yes (Other)
  Sender: FDA-Public Use
  Company Number: US-BAYER-2016-174408

PATIENT
  Sex: Female

DRUGS (2)
  1. CLIMARA [Suspect]
     Active Substance: ESTRADIOL
     Dosage: UNK
     Route: 062
     Dates: start: 2015
  2. PROGESTERON [Suspect]
     Active Substance: PROGESTERONE
     Dosage: UNK

REACTIONS (3)
  - Product outer packaging issue [None]
  - Uterine haemorrhage [None]
  - Hyperhidrosis [None]
